FAERS Safety Report 10661671 (Version 7)
Quarter: 2016Q1

REPORT INFORMATION
  Report Type: Spontaneous
  Country: US (occurrence: US)
  Receive Date: 20141218
  Receipt Date: 20160113
  Transmission Date: 20160525
  Serious: Yes (Disabling, Other)
  Sender: FDA-Public Use
  Company Number: CHPA2014US016466

PATIENT
  Age: 3 Year
  Sex: Female

DRUGS (1)
  1. TRIAMINIC COLD AND ALLERGY [Suspect]
     Active Substance: BROMPHENIRAMINE MALEATE\PHENYLEPHRINE HYDROCHLORIDE
     Indication: NASOPHARYNGITIS
     Dosage: UNK
     Route: 048
     Dates: start: 20000320

REACTIONS (25)
  - Synovial cyst [Recovering/Resolving]
  - Vertigo positional [Recovering/Resolving]
  - Migraine [Unknown]
  - Hemihypertrophy [Recovering/Resolving]
  - Bronchospasm [Unknown]
  - Muscle tightness [Not Recovered/Not Resolved]
  - Pharyngitis [Unknown]
  - Limb asymmetry [Unknown]
  - Asthma [Unknown]
  - Disturbance in attention [Unknown]
  - Headache [Unknown]
  - Nervous system disorder [Recovering/Resolving]
  - Hemiplegia [Recovering/Resolving]
  - Viral infection [Unknown]
  - Rhinitis allergic [Unknown]
  - Ischaemic stroke [Recovered/Resolved with Sequelae]
  - Gait disturbance [Not Recovered/Not Resolved]
  - Otitis media acute [Recovering/Resolving]
  - Syncope [Unknown]
  - Memory impairment [Not Recovered/Not Resolved]
  - Fatigue [Not Recovered/Not Resolved]
  - Photosensitivity reaction [Unknown]
  - Ear pain [Unknown]
  - Chest pain [Unknown]
  - Learning disorder [Unknown]

NARRATIVE: CASE EVENT DATE: 200003
